FAERS Safety Report 6491103-9 (Version None)
Quarter: 2009Q4

REPORT INFORMATION
  Report Type: 
  Country: None (occurrence: None)
  Receive Date: 20091207
  Receipt Date: 20091124
  Transmission Date: 20100525
  Serious: Yes (Hospitalization, Other)
  Sender: FDA-Public Use
  Company Number: PAR_01520_2007

PATIENT
  Age: 9 Year
  Sex: Female

DRUGS (3)
  1. IBUPROFEN [Suspect]
     Indication: MENINGOCOCCAL SEPSIS
     Dosage: (DF ORAL)
     Route: 048
  2. CEFTRIAXONE [Suspect]
     Indication: MENINGOCOCCAL SEPSIS
     Dosage: (DF INTRAVENOUS (NOT OTHERWISE SPECIFIED))
     Route: 042
  3. ACETAMINOPHEN [Suspect]
     Indication: MENINGOCOCCAL SEPSIS
     Dosage: (DF ORAL)
     Route: 048

REACTIONS (6)
  - ABDOMINAL PAIN [None]
  - DEHYDRATION [None]
  - HYDRONEPHROSIS [None]
  - HYDROURETER [None]
  - RENAL FAILURE ACUTE [None]
  - RENAL PAPILLARY NECROSIS [None]
